FAERS Safety Report 9554311 (Version 1)
Quarter: 2013Q3

REPORT INFORMATION
  Report Type: Spontaneous
  Country: DE (occurrence: None)
  Receive Date: 20130726
  Receipt Date: 20130726
  Transmission Date: 20140515
  Serious: Yes (Hospitalization)
  Sender: FDA-Public Use
  Company Number: E2B_00000824

PATIENT
  Age: 27 Year
  Sex: Male

DRUGS (4)
  1. QUETIAPINE [Suspect]
     Indication: PSYCHOTIC DISORDER
     Dosage: 400-600 MG (DAILY), ORAL
     Route: 048
     Dates: start: 20121207, end: 20121207
  2. LITHIUM CARBONATE [Suspect]
     Indication: PRODUCT USED FOR UNKNOWN INDICATION
     Route: 048
     Dates: start: 20121114, end: 20121128
  3. RAMIIPRIL [Concomitant]
     Route: 048
  4. LORAZEPAM [Concomitant]

REACTIONS (1)
  - Myoclonus [None]
